FAERS Safety Report 19648830 (Version 1)
Quarter: 2021Q3

REPORT INFORMATION
  Report Type: Spontaneous
  Country: US (occurrence: US)
  Receive Date: 20210802
  Receipt Date: 20210802
  Transmission Date: 20211014
  Serious: Yes (Death)
  Sender: FDA-Public Use
  Company Number: US-ENDO PHARMACEUTICALS INC-2021-010602

PATIENT
  Age: 8 Decade
  Sex: Female

DRUGS (3)
  1. KETALAR [Suspect]
     Active Substance: KETAMINE HYDROCHLORIDE
     Dosage: 12 MG (0.5 MG/KG), SINGLE
     Route: 042
  2. KETALAR [Suspect]
     Active Substance: KETAMINE HYDROCHLORIDE
     Indication: PRODUCT USED FOR UNKNOWN INDICATION
     Dosage: 12 MG (0.5 MG/KG), SINGLE
     Route: 042
  3. KETALAR [Suspect]
     Active Substance: KETAMINE HYDROCHLORIDE
     Dosage: 12 MG (0.5 MG/KG), SINGLE
     Route: 042

REACTIONS (1)
  - Death [Fatal]
